FAERS Safety Report 9743983 (Version 2)
Quarter: 2013Q4

REPORT INFORMATION
  Report Type: Spontaneous
  Country: US (occurrence: US)
  Receive Date: 20131210
  Receipt Date: 20131212
  Transmission Date: 20140711
  Serious: No
  Sender: FDA-Public Use
  Company Number: US-BIOGENIDEC-2013BI098020

PATIENT
  Age: 76 Year
  Sex: Male

DRUGS (14)
  1. TECFIDERA [Suspect]
     Indication: MULTIPLE SCLEROSIS
     Route: 048
     Dates: start: 201309, end: 201311
  2. AMBIEN [Concomitant]
  3. ASPIRIN [Concomitant]
  4. BACTRIM DS [Concomitant]
  5. LUNESTA [Concomitant]
  6. MICARDIS [Concomitant]
  7. MS CONTIN [Concomitant]
  8. NUVIGIL [Concomitant]
  9. PERCOCET [Concomitant]
  10. PREVACID [Concomitant]
  11. ROBAXIN [Concomitant]
  12. THERA-M [Concomitant]
  13. ZANAFLEX [Concomitant]
  14. ZOCOR [Concomitant]

REACTIONS (10)
  - Tinnitus [Not Recovered/Not Resolved]
  - Visual acuity reduced [Not Recovered/Not Resolved]
  - Weight increased [Unknown]
  - Hyperhidrosis [Unknown]
  - Malaise [Unknown]
  - Depressed mood [Unknown]
  - Coordination abnormal [Unknown]
  - Visual impairment [Unknown]
  - Hearing impaired [Unknown]
  - Flushing [Not Recovered/Not Resolved]
